FAERS Safety Report 7407893-4 (Version None)
Quarter: 2011Q2

REPORT INFORMATION
  Report Type: 
  Country: None (occurrence: None)
  Receive Date: 20110401
  Receipt Date: 20110328
  Transmission Date: 20111010
  Serious: Yes (Hospitalization)
  Sender: FDA-Public Use
  Company Number: 2011SP014141

PATIENT
  Age: 24 Year
  Sex: Female
  Weight: 106.5953 kg

DRUGS (1)
  1. IMPLANON [Suspect]
     Indication: CONTRACEPTION
     Dates: start: 20080603

REACTIONS (2)
  - ABDOMINAL PAIN [None]
  - MENSTRUATION IRREGULAR [None]
